FAERS Safety Report 4588744-2 (Version None)
Quarter: 2005Q1

REPORT INFORMATION
  Report Type: 
  Country: None (occurrence: None)
  Receive Date: 20050222
  Receipt Date: 20050215
  Transmission Date: 20050727
  Serious: Yes (Death)
  Sender: FDA-Public Use
  Company Number: CH-BRISTOL-MYERS SQUIBB COMPANY-12864690

PATIENT
  Age: 8 Decade
  Sex: Female

DRUGS (2)
  1. COAPROVEL TABS 300MG/12.5MG [Suspect]
     Indication: HYPERTENSION
     Route: 048
     Dates: start: 20040429
  2. FELODIPINE [Concomitant]

REACTIONS (1)
  - GALLBLADDER CANCER [None]
